FAERS Safety Report 20115072 (Version 1)
Quarter: 2021Q4

REPORT INFORMATION
  Report Type: Spontaneous
  Country: US (occurrence: US)
  Receive Date: 20211125
  Receipt Date: 20211125
  Transmission Date: 20220303
  Serious: Yes (Hospitalization)
  Sender: FDA-Public Use
  Company Number: US-ELI_LILLY_AND_COMPANY-US202111007379

PATIENT
  Sex: Female

DRUGS (1)
  1. OLUMIANT [Interacting]
     Active Substance: BARICITINIB
     Indication: Rheumatoid arthritis
     Dosage: 2 MG, UNKNOWN
     Route: 048
     Dates: start: 20211019, end: 20211021

REACTIONS (6)
  - Memory impairment [Recovered/Resolved]
  - Anxiety [Recovered/Resolved]
  - Flight of ideas [Recovered/Resolved]
  - Psychotic disorder [Recovered/Resolved]
  - Drug interaction [Unknown]
  - Therapeutic response shortened [Recovered/Resolved]

NARRATIVE: CASE EVENT DATE: 20211019
